FAERS Safety Report 24981228 (Version 1)
Quarter: 2025Q1

REPORT INFORMATION
  Report Type: Report from Study
  Country: US (occurrence: None)
  Receive Date: 20250218
  Receipt Date: 20250218
  Transmission Date: 20250408
  Serious: Yes (Hospitalization, Other)
  Sender: ALEXION PHARMACEUTICALS
  Company Number: US-AstraZeneca-2014SE99173

PATIENT
  Age: 81 Year
  Weight: 68.039 kg

DRUGS (13)
  1. NEXIUM [Suspect]
     Active Substance: ESOMEPRAZOLE MAGNESIUM
     Indication: Gastrooesophageal reflux disease
  2. CRESTOR [Suspect]
     Active Substance: ROSUVASTATIN CALCIUM
  3. PLAVIX [Concomitant]
     Active Substance: CLOPIDOGREL BISULFATE
     Indication: Aortic occlusion
  4. ASPIRIN [Concomitant]
     Active Substance: ASPIRIN
     Indication: Cardiac disorder
  5. LASIX [Concomitant]
     Active Substance: FUROSEMIDE
     Indication: Renal disorder
  6. ALDACTONE [Concomitant]
     Active Substance: SPIRONOLACTONE
     Indication: Renal disorder
  7. CALCIUM [Concomitant]
     Active Substance: CALCIUM
     Indication: Bone disorder
  8. MAGNESIUM [Concomitant]
     Active Substance: MAGNESIUM
     Indication: Migraine
  9. MIRALAX [Concomitant]
     Active Substance: POLYETHYLENE GLYCOL 3350
     Indication: Constipation
  10. VITAMIN D [Concomitant]
     Active Substance: VITAMIN D NOS
     Indication: Rheumatoid arthritis
  11. VITAMIN B12 [Concomitant]
     Active Substance: CYANOCOBALAMIN
     Indication: Vitamin supplementation
  12. LOPRESSOR [Concomitant]
     Active Substance: METOPROLOL TARTRATE
     Indication: Cardiac disorder
  13. LOPRESSOR [Concomitant]
     Active Substance: METOPROLOL TARTRATE
     Dosage: 75 MILLIGRAM, BID

REACTIONS (13)
  - Wrist fracture [Unknown]
  - Chest pain [Recovered/Resolved]
  - Renal disorder [Recovering/Resolving]
  - Therapeutic response unexpected [Unknown]
  - Hypoaesthesia [Recovered/Resolved]
  - Pulse abnormal [Recovered/Resolved]
  - Heart rate increased [Not Recovered/Not Resolved]
  - Joint swelling [Not Recovered/Not Resolved]
  - Rheumatoid arthritis [Not Recovered/Not Resolved]
  - Ophthalmic migraine [Recovered/Resolved]
  - Hypoacusis [Not Recovered/Not Resolved]
  - Blood pressure decreased [Not Recovered/Not Resolved]
  - Product dose omission issue [Unknown]
